FAERS Safety Report 8806903 (Version 2)
Quarter: 2015Q1

REPORT INFORMATION
  Report Type: Report from Study
  Country: US (occurrence: US)
  Receive Date: 20120925
  Receipt Date: 20150310
  Transmission Date: 20150721
  Serious: Yes (Death, Life-Threatening, Hospitalization, Other)
  Sender: FDA-Public Use
  Company Number: US-ROCHE-1093339

PATIENT
  Age: 48 Year
  Sex: Female

DRUGS (38)
  1. HERCEPTIN [Suspect]
     Active Substance: TRASTUZUMAB
     Indication: BREAST CANCER FEMALE
     Route: 042
  2. HERCEPTIN [Suspect]
     Active Substance: TRASTUZUMAB
     Route: 042
  3. HERCEPTIN [Suspect]
     Active Substance: TRASTUZUMAB
     Dosage: LOADING DOSE
     Route: 042
  4. CARBOPLATIN. [Concomitant]
     Active Substance: CARBOPLATIN
  5. LEVOTHYROXIN [Concomitant]
     Active Substance: LEVOTHYROXINE
     Route: 065
  6. ARANESP [Concomitant]
     Active Substance: DARBEPOETIN ALFA
     Route: 042
  7. SANDOSTATIN [Concomitant]
     Active Substance: OCTREOTIDE ACETATE
     Route: 058
  8. LASIX [Concomitant]
     Active Substance: FUROSEMIDE
     Route: 048
  9. FENTANYL TRANSDERMAL SYSTEM [Concomitant]
     Active Substance: FENTANYL
     Route: 065
  10. TAGAMET [Concomitant]
     Active Substance: CIMETIDINE
     Route: 042
  11. LYRICA [Concomitant]
     Active Substance: PREGABALIN
     Route: 048
  12. LIDOCAINE. [Concomitant]
     Active Substance: LIDOCAINE
  13. ELAVIL [Suspect]
     Active Substance: AMITRIPTYLINE HYDROCHLORIDE
     Indication: PRODUCT USED FOR UNKNOWN INDICATION
     Route: 048
  14. BENADRYL [Concomitant]
     Active Substance: DIPHENHYDRAMINE HYDROCHLORIDE
     Route: 065
  15. PROTONIX (UNITED STATES) [Concomitant]
  16. HEPARIN [Concomitant]
     Active Substance: HEPARIN SODIUM
     Route: 065
  17. INFLUENZA VACCINE [Concomitant]
     Active Substance: INFLUENZA VIRUS VACCINE
  18. FILGRASTIM [Concomitant]
     Active Substance: FILGRASTIM
     Route: 058
  19. DECADRON [Concomitant]
     Active Substance: DEXAMETHASONE
     Route: 042
  20. NAVELBINE [Concomitant]
     Active Substance: VINORELBINE TARTRATE
     Route: 042
  21. MORPHINE [Concomitant]
     Active Substance: MORPHINE
  22. ATIVAN [Concomitant]
     Active Substance: LORAZEPAM
  23. TICARCILLIN [Concomitant]
     Active Substance: TICARCILLIN
  24. AVASTIN [Suspect]
     Active Substance: BEVACIZUMAB
     Indication: BONE CANCER
  25. TYLENOL [Concomitant]
     Active Substance: ACETAMINOPHEN
     Route: 048
  26. ZOSYN [Concomitant]
     Active Substance: PIPERACILLIN SODIUM\TAZOBACTAM SODIUM
  27. LEVAQUIN [Concomitant]
     Active Substance: LEVOFLOXACIN
     Route: 042
  28. AVASTIN [Suspect]
     Active Substance: BEVACIZUMAB
     Indication: BREAST CANCER FEMALE
     Route: 042
     Dates: start: 20070524, end: 20070530
  29. XELODA [Suspect]
     Active Substance: CAPECITABINE
     Indication: BREAST CANCER FEMALE
     Route: 048
  30. LOVENOX [Concomitant]
     Active Substance: ENOXAPARIN SODIUM
     Route: 058
  31. PRILOSEC [Concomitant]
     Active Substance: OMEPRAZOLE MAGNESIUM
     Route: 065
  32. TYKERB [Concomitant]
     Active Substance: LAPATINIB DITOSYLATE
     Route: 048
  33. PEGFILGRASTIM [Concomitant]
     Active Substance: PEGFILGRASTIM
     Route: 058
  34. ALOXI [Concomitant]
     Active Substance: PALONOSETRON HYDROCHLORIDE
     Route: 042
  35. TAXOL [Concomitant]
     Active Substance: PACLITAXEL
  36. HYDROMORPHONE [Concomitant]
     Active Substance: HYDROMORPHONE
     Route: 065
  37. ZOFRAN [Concomitant]
     Active Substance: ONDANSETRON HYDROCHLORIDE
     Route: 060
  38. ZOMETA [Concomitant]
     Active Substance: ZOLEDRONIC ACID
     Route: 042

REACTIONS (40)
  - Portal vein thrombosis [Unknown]
  - Urinary tract infection [Unknown]
  - Lung disorder [Unknown]
  - Oedema peripheral [Unknown]
  - Vomiting [Unknown]
  - Metastases to bone [Unknown]
  - Peripheral swelling [Unknown]
  - Tongue discolouration [Unknown]
  - Lethargy [Unknown]
  - Lung hyperinflation [Unknown]
  - Cough [Unknown]
  - Mucosal inflammation [Unknown]
  - Weight decreased [Unknown]
  - Balance disorder [Unknown]
  - Death [Fatal]
  - Breast cancer [Unknown]
  - Hepatic failure [Unknown]
  - Nausea [Unknown]
  - Neutropenia [Unknown]
  - Hemiparesis [Unknown]
  - Subclavian vein thrombosis [Unknown]
  - Anaemia [Unknown]
  - Tachycardia [Unknown]
  - Dyspnoea [Unknown]
  - Constipation [Unknown]
  - Blood urine present [Unknown]
  - Jaundice [Unknown]
  - Paraesthesia [Unknown]
  - Diarrhoea [Unknown]
  - Pyrexia [Unknown]
  - Pain in extremity [Unknown]
  - Dizziness [Unknown]
  - Metastases to liver [Unknown]
  - Chills [Unknown]
  - Lip pain [Unknown]
  - Joint swelling [Unknown]
  - Stomatitis [Unknown]
  - Hypokalaemia [Unknown]
  - Rhinorrhoea [Unknown]
  - Fatigue [Unknown]

NARRATIVE: CASE EVENT DATE: 20070701
